FAERS Safety Report 13251603 (Version 1)
Quarter: 2017Q1

REPORT INFORMATION
  Report Type: Spontaneous
  Country: BR (occurrence: BR)
  Receive Date: 20170220
  Receipt Date: 20170220
  Transmission Date: 20170428
  Serious: Yes (Hospitalization, Other)
  Sender: FDA-Public Use
  Company Number: BR-UCBSA-2017006273

PATIENT
  Age: 48 Year
  Sex: Female
  Weight: 52 kg

DRUGS (1)
  1. CIMZIA [Suspect]
     Active Substance: CERTOLIZUMAB PEGOL
     Indication: RHEUMATOID ARTHRITIS
     Dosage: 400 MG, MONTHLY (QM)
     Route: 058
     Dates: start: 201608

REACTIONS (7)
  - Furuncle [Unknown]
  - Thrombosis [Recovered/Resolved]
  - Herpes virus infection [Unknown]
  - Urinary tract infection [Unknown]
  - Blindness [Unknown]
  - Infection [Unknown]
  - Alopecia [Unknown]

NARRATIVE: CASE EVENT DATE: 201608
